FAERS Safety Report 21987396 (Version 1)
Quarter: 2023Q1

REPORT INFORMATION
  Report Type: Spontaneous
  Country: GB (occurrence: GB)
  Receive Date: 20230214
  Receipt Date: 20230214
  Transmission Date: 20230418
  Serious: No
  Sender: FDA-Public Use
  Company Number: None

PATIENT

DRUGS (1)
  1. CEPHALEXIN [Suspect]
     Active Substance: CEPHALEXIN
     Indication: Postoperative care
     Dosage: UNK
     Route: 065

REACTIONS (1)
  - Urticaria [Not Recovered/Not Resolved]
